FAERS Safety Report 17494938 (Version 1)
Quarter: 2020Q1

REPORT INFORMATION
  Report Type: Spontaneous
  Country: US (occurrence: US)
  Receive Date: 20200303
  Receipt Date: 20200303
  Transmission Date: 20200409
  Serious: No
  Sender: FDA-Public Use
  Company Number: US-AMNEAL PHARMACEUTICALS-2019-AMRX-02512

PATIENT
  Sex: Female
  Weight: 46 kg

DRUGS (5)
  1. CALCIUM [Concomitant]
     Active Substance: CALCIUM
     Indication: SUPPLEMENTATION THERAPY
     Dosage: UNK
     Route: 065
  2. RYTARY [Suspect]
     Active Substance: CARBIDOPA\LEVODOPA
     Indication: PARKINSON^S DISEASE
     Dosage: 48.75/195 MG, 2 CAPSULES, 5X/DAY (EVERY FOUR HOURS)
     Route: 048
     Dates: start: 201910
  3. VITAMIN D [VITAMIN D NOS] [Concomitant]
     Active Substance: VITAMIN D NOS
     Indication: SUPPLEMENTATION THERAPY
     Dosage: UNK
     Route: 065
  4. SINEMET [Concomitant]
     Active Substance: CARBIDOPA\LEVODOPA
     Indication: PRODUCT USED FOR UNKNOWN INDICATION
     Dosage: UNK
     Route: 065
  5. RYTARY [Suspect]
     Active Substance: CARBIDOPA\LEVODOPA
     Dosage: 23.75/95 MG, 2 CAPSULES, 5 /DAY
     Route: 048
     Dates: start: 2019, end: 20191209

REACTIONS (4)
  - Therapeutic response shortened [Not Recovered/Not Resolved]
  - Dizziness [Recovering/Resolving]
  - Drug ineffective [Unknown]
  - Dyspnoea [Recovering/Resolving]

NARRATIVE: CASE EVENT DATE: 2019
